FAERS Safety Report 10059464 (Version 1)
Quarter: 2014Q2

REPORT INFORMATION
  Report Type: Spontaneous
  Country: FR (occurrence: FR)
  Receive Date: 20140404
  Receipt Date: 20140404
  Transmission Date: 20141212
  Serious: Yes (Hospitalization, Other)
  Sender: FDA-Public Use
  Company Number: FR-PFIZER INC-2014082890

PATIENT
  Age: 75 Year
  Sex: Male

DRUGS (12)
  1. LYRICA [Suspect]
     Dosage: 100 MG, 2X/DAY
     Route: 048
  2. CISPLATIN [Suspect]
     Dosage: 200 MG, 1X/DAY
     Route: 042
     Dates: start: 20140225, end: 20140225
  3. CYTARABINE [Suspect]
     Dosage: 4000 MG, 1X/DAY
     Route: 042
     Dates: start: 20140226, end: 20140227
  4. METHOTREXATE SODIUM [Suspect]
     Dosage: 40 MG, 1X/DAY
     Route: 042
     Dates: start: 20140225, end: 20140228
  5. METFORMIN HCL [Suspect]
     Dosage: 1000 MG, 3X/DAY
     Route: 048
     Dates: end: 20140305
  6. BACTRIM FORTE [Suspect]
     Dosage: 1 DF, THRICE PER WEEK
     Route: 048
     Dates: end: 20140305
  7. ZELITREX [Suspect]
     Dosage: 500 MG, 2X/DAY
     Route: 048
     Dates: end: 20140305
  8. ZYLORIC [Suspect]
     Dosage: UNK
     Route: 048
     Dates: start: 20140225, end: 20140306
  9. TEVAGRASTIM [Suspect]
     Dosage: UNK
     Route: 042
     Dates: start: 20140302
  10. RITUXIMAB [Suspect]
     Dosage: 750 MG, 1X/DAY
     Route: 042
     Dates: start: 20140225, end: 20140225
  11. DEXAMETHASONE [Concomitant]
     Dosage: UNK
     Dates: start: 20140225
  12. CHIBROCADRON [Concomitant]
     Dosage: UNK
     Route: 031

REACTIONS (2)
  - Renal failure acute [Recovering/Resolving]
  - Renal tubular necrosis [Unknown]
